FAERS Safety Report 7474724-6 (Version None)
Quarter: 2011Q1

REPORT INFORMATION
  Report Type: 
  Country: None (occurrence: None)
  Receive Date: 20110302
  Receipt Date: 20100719
  Transmission Date: 20110831
  Serious: Yes (Death, Hospitalization)
  Sender: FDA-Public Use
  Company Number: 163-21880-10050262

PATIENT
  Age: 55 Year
  Sex: Male

DRUGS (2)
  1. VELCADE [Concomitant]
  2. REVLIMID [Suspect]
     Indication: MULTIPLE MYELOMA
     Dosage: 25 MG, DAILY X 3 WEEKS, OFF 1 WEEK, PO
     Route: 048
     Dates: start: 20100226, end: 20100420

REACTIONS (2)
  - DRUG INEFFECTIVE [None]
  - DISEASE PROGRESSION [None]
